FAERS Safety Report 4681302-0 (Version None)
Quarter: 2005Q2

REPORT INFORMATION
  Report Type: 
  Country: None (occurrence: None)
  Receive Date: 20050603
  Receipt Date: 20050524
  Transmission Date: 20051028
  Serious: Yes (Other)
  Sender: FDA-Public Use
  Company Number: JP-ROCHE-405895

PATIENT
  Age: 62 Year
  Sex: Female

DRUGS (1)
  1. PEG-INTERFERON ALFA 2A (RO 25-8310) [Suspect]
     Route: 058
     Dates: start: 20041013, end: 20050124

REACTIONS (2)
  - LICHEN PLANUS [None]
  - PANCYTOPENIA [None]
